FAERS Safety Report 8383403-2 (Version None)
Quarter: 2012Q2

REPORT INFORMATION
  Report Type: 
  Country: None (occurrence: None)
  Receive Date: 20120524
  Receipt Date: 20120523
  Transmission Date: 20120825
  Serious: Yes (Other)
  Sender: FDA-Public Use
  Company Number: US-PFIZER INC-2011293323

PATIENT
  Sex: Female
  Weight: 73.016 kg

DRUGS (2)
  1. LYRICA [Suspect]
     Indication: FIBROMYALGIA
     Dosage: 100 MG, 2X/DAY
     Route: 048
     Dates: start: 20110801
  2. NABUMETONE [Concomitant]
     Indication: PAIN
     Dosage: UNK

REACTIONS (6)
  - WEIGHT INCREASED [None]
  - MALAISE [None]
  - GALLBLADDER DISORDER [None]
  - DRUG INEFFECTIVE [None]
  - MIGRAINE [None]
  - PAIN [None]
